FAERS Safety Report 4710538-5 (Version None)
Quarter: 2005Q3

REPORT INFORMATION
  Report Type: 
  Country: None (occurrence: None)
  Receive Date: 20050707
  Receipt Date: 20050627
  Transmission Date: 20060218
  Serious: Yes (Hospitalization, Disabling, Other)
  Sender: FDA-Public Use
  Company Number: 2005091354

PATIENT
  Sex: Female
  Weight: 60 kg

DRUGS (9)
  1. CABERGOLINE [Suspect]
     Indication: PARKINSON'S DISEASE
     Dosage: DAILY, ORAL  ; 6 MG (DAILY) ORAL
     Route: 048
     Dates: start: 20031101, end: 20050613
  2. CABERGOLINE [Suspect]
     Indication: PARKINSON'S DISEASE
     Dosage: DAILY, ORAL  ; 6 MG (DAILY) ORAL
     Route: 048
     Dates: start: 20040901
  3. SELEGILINE HCL [Concomitant]
  4. TEBONIN (GINKGO BILOBA EXTRACT) [Concomitant]
  5. NEUROPLANT (HYPERICUM EXTRACT) [Concomitant]
  6. BISOPROLOL FUMARATE [Concomitant]
  7. GINGIUM (GINKGO BILOBA EXTRACT) [Concomitant]
  8. FUROSEMIDE [Concomitant]
  9. HEPARIN [Concomitant]

REACTIONS (13)
  - AORTIC VALVE INCOMPETENCE [None]
  - AORTIC VALVE SCLEROSIS [None]
  - CARDIAC OUTPUT DECREASED [None]
  - CORONARY ARTERY ATHEROSCLEROSIS [None]
  - DYSPNOEA [None]
  - MITRAL VALVE DISEASE [None]
  - MITRAL VALVE INCOMPETENCE [None]
  - MITRAL VALVE SCLEROSIS [None]
  - PLEURAL EFFUSION [None]
  - PULMONARY ARTERIAL PRESSURE INCREASED [None]
  - PULMONARY CONGESTION [None]
  - TRICUSPID VALVE DISEASE [None]
  - TRICUSPID VALVE INCOMPETENCE [None]
